FAERS Safety Report 10328305 (Version 1)
Quarter: 2014Q3

REPORT INFORMATION
  Report Type: Spontaneous
  Country: US (occurrence: None)
  Receive Date: 20140717
  Receipt Date: 20140717
  Transmission Date: 20150326
  Serious: Yes (Hospitalization)
  Sender: FDA-Public Use
  Company Number: None

PATIENT
  Age: 65 Year
  Sex: Male
  Weight: 50.5 kg

DRUGS (2)
  1. OLANZAPINE. [Suspect]
     Active Substance: OLANZAPINE
     Indication: BIPOLAR I DISORDER
     Route: 048
     Dates: start: 20130218, end: 20130227
  2. DIVALPROEX [Suspect]
     Active Substance: DIVALPROEX SODIUM
     Indication: BIPOLAR I DISORDER
     Route: 048
     Dates: start: 20130218, end: 20130222

REACTIONS (7)
  - Hypoalbuminaemia [None]
  - Hyperammonaemia [None]
  - Confusional state [None]
  - Fall [None]
  - Oedema [None]
  - Sedation [None]
  - Toxicity to various agents [None]

NARRATIVE: CASE EVENT DATE: 20130222
